FAERS Safety Report 16832835 (Version 1)
Quarter: 2019Q3

REPORT INFORMATION
  Report Type: Spontaneous
  Country: GB (occurrence: GB)
  Receive Date: 20190920
  Receipt Date: 20190920
  Transmission Date: 20191005
  Serious: Yes (Other)
  Sender: FDA-Public Use
  Company Number: GB-009507513-1908GBR009528

PATIENT
  Age: 8 Decade
  Sex: Male

DRUGS (2)
  1. SINEMET [Suspect]
     Active Substance: CARBIDOPA\LEVODOPA
     Dosage: UNK
     Route: 048
     Dates: end: 20190908
  2. SINEMET [Suspect]
     Active Substance: CARBIDOPA\LEVODOPA
     Dosage: UNK
     Route: 048
     Dates: end: 20190908

REACTIONS (8)
  - Adverse event [Unknown]
  - Hypersomnia [Unknown]
  - Progressive supranuclear palsy [Unknown]
  - Unintentional use for unapproved indication [Unknown]
  - Decreased activity [Unknown]
  - Speech disorder [Recovered/Resolved]
  - Feeling abnormal [Unknown]
  - General physical condition abnormal [Unknown]
